FAERS Safety Report 5878094-6 (Version None)
Quarter: 2008Q3

REPORT INFORMATION
  Report Type: 
  Country: None (occurrence: None)
  Receive Date: 20080911
  Receipt Date: 20080909
  Transmission Date: 20090109
  Serious: Yes (Hospitalization, Disabling)
  Sender: FDA-Public Use
  Company Number: US-MERCK-0809USA01271

PATIENT
  Age: 66 Year
  Sex: Female

DRUGS (1)
  1. FOSAMAX [Suspect]
     Indication: BONE DENSITY DECREASED
     Route: 048
     Dates: start: 19970101

REACTIONS (8)
  - ADVERSE EVENT [None]
  - DEPRESSION [None]
  - FALL [None]
  - FEMUR FRACTURE [None]
  - HAEMORRHAGE [None]
  - MUSCLE INJURY [None]
  - SCAR PAIN [None]
  - VASCULAR INJURY [None]
